FAERS Safety Report 7092657-4 (Version None)
Quarter: 2010Q4

REPORT INFORMATION
  Report Type: 
  Country: None (occurrence: None)
  Receive Date: 20101108
  Receipt Date: 20101108
  Transmission Date: 20110411
  Serious: No
  Sender: FDA-Public Use
  Company Number: None

PATIENT
  Age: 38 Year
  Sex: Female
  Weight: 63.5036 kg

DRUGS (1)
  1. LAMOTRIGINE [Suspect]
     Indication: BIPOLAR DISORDER
     Dosage: 100MG 1X A DAY
     Dates: start: 20030509, end: 20101111

REACTIONS (4)
  - AFFECTIVE DISORDER [None]
  - DISTURBANCE IN ATTENTION [None]
  - HEADACHE [None]
  - PRODUCT SUBSTITUTION ISSUE [None]
